FAERS Safety Report 7035377-4 (Version None)
Quarter: 2010Q4

REPORT INFORMATION
  Report Type: 
  Country: None (occurrence: None)
  Receive Date: 20101008
  Receipt Date: 20100921
  Transmission Date: 20110411
  Serious: Yes (Hospitalization, Other)
  Sender: FDA-Public Use
  Company Number: PHHY2010BR65973

PATIENT
  Age: 49 Year
  Sex: Male

DRUGS (12)
  1. DIOVAN [Suspect]
     Indication: CARDIAC FAILURE CHRONIC
     Dosage: 160 MG
  2. RASILEZ [Suspect]
     Dosage: 150 MG, QD
  3. MORPHINE [Concomitant]
     Indication: ANGIOPLASTY
  4. NITRATES [Concomitant]
     Indication: ANGIOPLASTY
  5. ASPIRIN [Concomitant]
     Indication: ANGIOPLASTY
  6. CLOPIDOGREL [Concomitant]
     Indication: ANGIOPLASTY
  7. ENOXAPARIN SODIUM [Concomitant]
     Indication: ANGIOPLASTY
  8. FUROSEMIDE [Concomitant]
     Dosage: UNK
  9. SPIRONOLACTONE [Concomitant]
     Dosage: 25 MG / DAY
  10. DIGOXIN [Concomitant]
     Dosage: HALF
  11. DIAATORVASTATINA [Concomitant]
     Dosage: 10 MG
  12. WARFARIN SODIUM [Concomitant]

REACTIONS (8)
  - AKINESIA [None]
  - ANEURYSM [None]
  - ANEURYSMECTOMY [None]
  - EJECTION FRACTION ABNORMAL [None]
  - INTRACARDIAC THROMBUS [None]
  - MITRAL VALVE INCOMPETENCE [None]
  - THROMBECTOMY [None]
  - TRICUSPID VALVE INCOMPETENCE [None]
